FAERS Safety Report 7877431-0 (Version None)
Quarter: 2011Q4

REPORT INFORMATION
  Report Type: 
  Country: None (occurrence: None)
  Receive Date: 20111031
  Receipt Date: 20111020
  Transmission Date: 20120403
  Serious: Yes (Hospitalization)
  Sender: FDA-Public Use
  Company Number: US-ASTRAZENECA-2011SE08929

PATIENT
  Age: 51 Year
  Sex: Female

DRUGS (6)
  1. HYDROCODONE BITARTRATE [Concomitant]
  2. VITAMIN B COMPLEX CAP [Concomitant]
  3. CRESTOR [Suspect]
     Route: 048
  4. CLONAZEPAM [Concomitant]
  5. ASPIRIN [Concomitant]
  6. CALCIUM [Concomitant]

REACTIONS (4)
  - MEMORY IMPAIRMENT [None]
  - ARTERIAL OCCLUSIVE DISEASE [None]
  - LEARNING DISORDER [None]
  - PAIN IN EXTREMITY [None]
